FAERS Safety Report 8533851-2 (Version None)
Quarter: 2012Q3

REPORT INFORMATION
  Report Type: 
  Country: None (occurrence: None)
  Receive Date: 20120724
  Receipt Date: 20120709
  Transmission Date: 20120928
  Serious: Yes (Congenital Anomaly)
  Sender: FDA-Public Use
  Company Number: DE-WATSON-2012-11933

PATIENT
  Sex: Female
  Weight: 0.472 kg

DRUGS (5)
  1. FOLIC ACID [Concomitant]
     Indication: PROPHYLAXIS OF NEURAL TUBE DEFECT
     Dosage: 0.8 [MG/D ]
     Route: 064
  2. FLUOXETINE HCL [Suspect]
     Indication: DEPRESSION
     Dosage: 40 MG, DAILY
     Route: 064
     Dates: start: 20100523
  3. ACETAMINOPHEN [Concomitant]
     Indication: PYREXIA
     Dosage: UNK
     Route: 064
  4. AMOXICILLIN [Concomitant]
     Indication: URINARY TRACT INFECTION
     Dosage: UNK
     Route: 064
  5. CIPROFLOXACIN [Concomitant]
     Indication: URINARY TRACT INFECTION
     Dosage: 250 [MG/D ]/ ONLY 3 DAYS TAKEN BETWEEN WEEK 8 AND 9
     Route: 064

REACTIONS (3)
  - SPINA BIFIDA [None]
  - ARNOLD-CHIARI MALFORMATION [None]
  - HYDROCEPHALUS [None]
